FAERS Safety Report 4950961-7 (Version None)
Quarter: 2006Q1

REPORT INFORMATION
  Report Type: 
  Country: None (occurrence: None)
  Receive Date: 20060316
  Receipt Date: 20060228
  Transmission Date: 20060701
  Serious: Yes (Other)
  Sender: FDA-Public Use
  Company Number: FR-2006-005362

PATIENT
  Age: 55 Year
  Sex: Female

DRUGS (4)
  1. FLUDARA [Suspect]
     Indication: MULTIPLE MYELOMA
  2. CYCLOPHOSPHAMIDE [Concomitant]
  3. CYCLOSPORINE [Concomitant]
  4. MYCOPHENOLATE MOFETIL [Concomitant]

REACTIONS (8)
  - CYTOLYTIC HEPATITIS [None]
  - DRY SKIN [None]
  - EOSINOPHILIC PNEUMONIA ACUTE [None]
  - GRAFT VERSUS HOST DISEASE IN LIVER [None]
  - GRAFT VERSUS HOST DISEASE IN SKIN [None]
  - LICHEN PLANUS [None]
  - MYELOMA RECURRENCE [None]
  - RESPIRATORY FAILURE [None]
